FAERS Safety Report 9098538 (Version 1)
Quarter: 2013Q1

REPORT INFORMATION
  Report Type: Spontaneous
  Country: US (occurrence: US)
  Receive Date: 20130213
  Receipt Date: 20130213
  Transmission Date: 20140127
  Serious: Yes (Death)
  Sender: FDA-Public Use
  Company Number: US-ELI_LILLY_AND_COMPANY-US201302001791

PATIENT
  Age: 22 Year
  Sex: Female

DRUGS (6)
  1. OLANZAPINE [Suspect]
  2. AMITRIPTYLINE [Concomitant]
  3. ACETAMINOPHEN W/HYDROCODONE [Concomitant]
  4. TRAMADOL [Concomitant]
  5. CITALOPRAM [Concomitant]
  6. ETHANOL [Concomitant]

REACTIONS (1)
  - Completed suicide [Fatal]
